FAERS Safety Report 22138666 (Version 4)
Quarter: 2023Q2

REPORT INFORMATION
  Report Type: Report from Study
  Country: JP (occurrence: JP)
  Receive Date: 20230326
  Receipt Date: 20230430
  Transmission Date: 20230722
  Serious: No
  Sender: FDA-Public Use
  Company Number: JP-JNJFOC-20221026767

PATIENT
  Age: 77 Year
  Sex: Male

DRUGS (18)
  1. DARATUMUMAB [Suspect]
     Active Substance: DARATUMUMAB
     Indication: Plasma cell myeloma
     Dosage: DOSE UNKNOWN, EVERY WEDNESDAY
     Route: 058
     Dates: start: 20220921, end: 2022
  2. DARATUMUMAB [Suspect]
     Active Substance: DARATUMUMAB
     Indication: Plasma cell myeloma
     Dosage: DOSE UNKNOWN, MONDAY
     Route: 058
     Dates: start: 202210, end: 2022
  3. DARATUMUMAB [Suspect]
     Active Substance: DARATUMUMAB
     Indication: Plasma cell myeloma
     Dosage: DOSE UNKNOWN, MONDAY
     Route: 058
     Dates: start: 20221219
  4. ZOLPIDEM TARTRATE [Suspect]
     Active Substance: ZOLPIDEM TARTRATE
     Indication: Poor quality sleep
     Route: 048
  5. DENOSUMAB [Suspect]
     Active Substance: DENOSUMAB
     Indication: Product used for unknown indication
     Dosage: DOSE UNKNOWN
     Route: 058
     Dates: start: 20230227
  6. REVLIMID [Concomitant]
     Active Substance: LENALIDOMIDE
     Indication: Plasma cell myeloma
     Dosage: 3 DF PER DAY
     Route: 048
     Dates: start: 20220921, end: 2022
  7. INFLUENZA VIRUS VACCINE [Concomitant]
     Active Substance: INFLUENZA VIRUS VACCINE
     Indication: Prophylaxis
     Dosage: DOSE UNKNOWN
     Route: 065
  8. ICOSAPENT ETHYL [Concomitant]
     Active Substance: ICOSAPENT ETHYL
     Indication: Prophylaxis
     Dosage: DOSE UNKNOWN, IN THE MORNING AND EVENING
     Route: 048
  9. BISOPROLOL FUMARATE [Concomitant]
     Active Substance: BISOPROLOL FUMARATE
     Indication: Prophylaxis
     Dosage: DOSE UNKNOWN
     Route: 048
     Dates: end: 20221130
  10. TIXAGEVIMAB [Concomitant]
     Active Substance: TIXAGEVIMAB
     Dosage: DOSE UNKNOWN
     Route: 030
     Dates: start: 202211
  11. LOXOPROFEN SODIUM [Concomitant]
     Active Substance: LOXOPROFEN SODIUM
     Indication: Pain
     Dosage: P.R.N
     Route: 048
     Dates: start: 202211
  12. CANDESARTAN [Concomitant]
     Active Substance: CANDESARTAN
     Indication: Hypertension
     Dosage: DOSE UNKNOWN
     Route: 048
  13. MOLNUPIRAVIR [Concomitant]
     Active Substance: MOLNUPIRAVIR
     Indication: SARS-CoV-2 test positive
     Dosage: DOSE UNKNOWN
     Route: 048
     Dates: start: 20221210, end: 20221214
  14. CARBOCYSTEINE [Concomitant]
     Active Substance: CARBOCYSTEINE
     Indication: SARS-CoV-2 test positive
     Dosage: DOSE UNKNOWN
     Route: 048
     Dates: start: 20221210
  15. CALONAL [Concomitant]
     Active Substance: ACETAMINOPHEN
     Indication: Pyrexia
     Dosage: DOSE UNKNOWN, P.R.N
     Route: 048
     Dates: start: 20221210
  16. EVUSHELD [Concomitant]
     Active Substance: CILGAVIMAB\TIXAGEVIMAB
     Indication: Product used for unknown indication
     Dosage: DOSE UNKNOWN
     Route: 030
     Dates: start: 202211
  17. LAGEVRIO [Concomitant]
     Active Substance: MOLNUPIRAVIR
     Indication: SARS-CoV-2 test positive
     Dosage: DOSE UNKNOWN
     Route: 048
     Dates: start: 20221210, end: 20221214
  18. MAGNESIUM OXIDE [Concomitant]
     Active Substance: MAGNESIUM OXIDE
     Indication: Constipation
     Dosage: DOSE UNKNOWN, AFTER EACH MEAL
     Route: 048

REACTIONS (47)
  - Decreased appetite [Recovering/Resolving]
  - Thirst [Not Recovered/Not Resolved]
  - Pain in extremity [Recovering/Resolving]
  - Administration site pain [Recovering/Resolving]
  - Decreased immune responsiveness [Not Recovered/Not Resolved]
  - Dyspnoea [Recovering/Resolving]
  - Back pain [Not Recovered/Not Resolved]
  - Flank pain [Recovered/Resolved]
  - Herpes zoster [Recovered/Resolved]
  - Thrombosis [Not Recovered/Not Resolved]
  - Poor quality sleep [Not Recovered/Not Resolved]
  - Blood pressure decreased [Recovering/Resolving]
  - Middle insomnia [Not Recovered/Not Resolved]
  - Bradycardia [Not Recovered/Not Resolved]
  - Malaise [Not Recovered/Not Resolved]
  - Affect lability [Not Recovered/Not Resolved]
  - Hyperventilation [Not Recovered/Not Resolved]
  - Sleep apnoea syndrome [Not Recovered/Not Resolved]
  - Haemoglobin decreased [Not Recovered/Not Resolved]
  - Haematocrit decreased [Not Recovered/Not Resolved]
  - Blood glucose increased [Not Recovered/Not Resolved]
  - Feeling abnormal [Not Recovered/Not Resolved]
  - SARS-CoV-2 test positive [Recovered/Resolved]
  - Nasopharyngitis [Recovered/Resolved]
  - Rhinorrhoea [Recovered/Resolved]
  - Pyrexia [Recovered/Resolved]
  - Productive cough [Recovered/Resolved]
  - Blood pressure increased [Not Recovered/Not Resolved]
  - Arrhythmia [Not Recovered/Not Resolved]
  - Panic disorder [Not Recovered/Not Resolved]
  - Initial insomnia [Not Recovered/Not Resolved]
  - Blood pressure fluctuation [Not Recovered/Not Resolved]
  - Body temperature increased [Not Recovered/Not Resolved]
  - Tongue discomfort [Not Recovered/Not Resolved]
  - Nasopharyngitis [Recovering/Resolving]
  - Pyrexia [Recovering/Resolving]
  - Toothache [Recovered/Resolved]
  - Mastication disorder [Recovered/Resolved]
  - Periodontal disease [Recovered/Resolved]
  - Gingival erythema [Recovered/Resolved]
  - Initial insomnia [Recovered/Resolved]
  - Snoring [Not Recovered/Not Resolved]
  - Fatigue [Not Recovered/Not Resolved]
  - Off label use [Not Recovered/Not Resolved]
  - Pre-existing condition improved [Not Recovered/Not Resolved]
  - Flushing [Not Recovered/Not Resolved]
  - Constipation [Not Recovered/Not Resolved]

NARRATIVE: CASE EVENT DATE: 20220101
